FAERS Safety Report 16606318 (Version 6)
Quarter: 2020Q2

REPORT INFORMATION
  Report Type: Report from Study
  Country: None (occurrence: US)
  Receive Date: 20190721
  Receipt Date: 20200602
  Transmission Date: 20200713
  Serious: Yes (Other)
  Sender: FDA-Public Use
  Company Number: US-ABBVIE-19K-163-2854217-00

PATIENT
  Sex: Male

DRUGS (5)
  1. HUMIRA [Suspect]
     Active Substance: ADALIMUMAB
     Indication: RHEUMATOID ARTHRITIS
     Route: 058
  2. HUMIRA [Suspect]
     Active Substance: ADALIMUMAB
     Route: 058
  3. HUMIRA [Suspect]
     Active Substance: ADALIMUMAB
     Route: 058
  4. HUMIRA [Suspect]
     Active Substance: ADALIMUMAB
     Indication: RHEUMATOID ARTHRITIS
     Dosage: CITRATE FREE
     Route: 058
  5. HUMIRA [Suspect]
     Active Substance: ADALIMUMAB
     Route: 058

REACTIONS (29)
  - Musculoskeletal pain [Unknown]
  - Blood potassium increased [Unknown]
  - Blood glucose decreased [Unknown]
  - Influenza [Unknown]
  - Muscle spasms [Unknown]
  - Knee arthroplasty [Unknown]
  - Arthritis [Unknown]
  - Injection site pain [Unknown]
  - Animal scratch [Unknown]
  - Finger deformity [Unknown]
  - Hot flush [Unknown]
  - Arthralgia [Unknown]
  - Intervertebral disc protrusion [Unknown]
  - Spinal osteoarthritis [Unknown]
  - Bursitis [Unknown]
  - Thermal burn [Unknown]
  - Rotator cuff syndrome [Unknown]
  - Back injury [Unknown]
  - Spinal pain [Unknown]
  - Gallbladder rupture [Unknown]
  - Cervical vertebral fracture [Unknown]
  - Skin mass [Unknown]
  - Weight decreased [Unknown]
  - Dysstasia [Unknown]
  - Peripheral coldness [Unknown]
  - Nodule [Unknown]
  - Hypoaesthesia [Unknown]
  - Blood glucose increased [Unknown]
  - Injection site haemorrhage [Unknown]

NARRATIVE: CASE EVENT DATE: 2008
